FAERS Safety Report 8017295-8 (Version None)
Quarter: 2012Q1

REPORT INFORMATION
  Report Type: 
  Country: None (occurrence: None)
  Receive Date: 20120102
  Receipt Date: 20111222
  Transmission Date: 20120608
  Serious: Yes (Other)
  Sender: FDA-Public Use
  Company Number: PHFR2011GB006634

PATIENT
  Sex: Male

DRUGS (1)
  1. CLOZARIL [Suspect]
     Dosage: UNK
     Route: 048
     Dates: start: 20090612

REACTIONS (4)
  - VIRAL INFECTION [None]
  - NASOPHARYNGITIS [None]
  - INFLUENZA LIKE ILLNESS [None]
  - RHINITIS [None]
